FAERS Safety Report 18043534 (Version 1)
Quarter: 2020Q3

REPORT INFORMATION
  Report Type: Spontaneous
  Country: US (occurrence: US)
  Receive Date: 20200717
  Receipt Date: 20200717
  Transmission Date: 20201103
  Serious: Yes (Hospitalization)
  Sender: FDA-Public Use
  Company Number: None

PATIENT
  Sex: Female

DRUGS (5)
  1. XALKORI [Suspect]
     Active Substance: CRIZOTINIB
     Indication: ADRENAL GLAND CANCER
     Route: 048
     Dates: start: 20200505
  2. OXYDODONE [Suspect]
     Active Substance: OXYCODONE
  3. GABAPENTIN. [Suspect]
     Active Substance: GABAPENTIN
  4. CALCIUM [Suspect]
     Active Substance: CALCIUM
  5. VITAMIN D [Suspect]
     Active Substance: VITAMIN D NOS

REACTIONS (1)
  - Investigation [None]
